FAERS Safety Report 9991326 (Version 1)
Quarter: 2014Q1

REPORT INFORMATION
  Report Type: Spontaneous
  Country: US (occurrence: US)
  Receive Date: 20140310
  Receipt Date: 20140310
  Transmission Date: 20141002
  Serious: No
  Sender: FDA-Public Use
  Company Number: US-ABBVIE-13P-163-1135791-00

PATIENT
  Age: 78 Year
  Sex: Female
  Weight: 54.48 kg

DRUGS (8)
  1. HUMIRA [Suspect]
     Indication: CROHN^S DISEASE
     Dates: start: 20130806, end: 20130806
  2. HUMIRA [Suspect]
     Indication: RHEUMATOID ARTHRITIS
     Dates: start: 20130820, end: 20130820
  3. XARELTO [Concomitant]
     Indication: ATRIAL FIBRILLATION
  4. DOMPERIDONE [Concomitant]
     Indication: IMPAIRED GASTRIC EMPTYING
  5. BETAPACE [Concomitant]
     Indication: ATRIAL FIBRILLATION
  6. SYNTHROID [Concomitant]
     Indication: THYROID DISORDER
  7. DIAZEPAM [Concomitant]
     Indication: MENIERE^S DISEASE
  8. TRICOR [Concomitant]
     Indication: BLOOD CHOLESTEROL INCREASED

REACTIONS (1)
  - Injection site haemorrhage [Recovered/Resolved]
